FAERS Safety Report 19102732 (Version 1)
Quarter: 2021Q2

REPORT INFORMATION
  Report Type: Spontaneous
  Country: FR (occurrence: FR)
  Receive Date: 20210407
  Receipt Date: 20210407
  Transmission Date: 20210717
  Serious: Yes (Hospitalization)
  Sender: FDA-Public Use
  Company Number: NVSC2021FR071922

PATIENT
  Age: 4 Month
  Sex: Female
  Weight: 5 kg

DRUGS (2)
  1. SANDIMMUN [Suspect]
     Active Substance: CYCLOSPORINE
     Indication: OMENN SYNDROME
     Dosage: 3 MG/KG, QD
     Route: 041
     Dates: start: 20210225
  2. CAMPATH [Suspect]
     Active Substance: ALEMTUZUMAB
     Indication: OMENN SYNDROME
     Dosage: 0.5 MG/KG, 1 TOTAL
     Route: 041
     Dates: start: 20210310, end: 20210310

REACTIONS (2)
  - Thrombotic microangiopathy [Recovering/Resolving]
  - Vascular purpura [Recovering/Resolving]

NARRATIVE: CASE EVENT DATE: 20210311
